FAERS Safety Report 13948319 (Version 4)
Quarter: 2019Q4

REPORT INFORMATION
  Report Type: Spontaneous
  Country: JP (occurrence: JP)
  Receive Date: 20170908
  Receipt Date: 20191011
  Transmission Date: 20200122
  Serious: Yes (Hospitalization)
  Sender: FDA-Public Use
  Company Number: JP-009507513-1707JPN002407J

PATIENT
  Age: 76 Year
  Sex: Male
  Weight: 82 kg

DRUGS (15)
  1. TRAMADOL HYDROCHLORIDE. [Concomitant]
     Active Substance: TRAMADOL HYDROCHLORIDE
     Indication: PAIN PROPHYLAXIS
     Dosage: UNK
     Route: 065
     Dates: start: 20170608, end: 20170615
  2. LINEZOLID. [Concomitant]
     Active Substance: LINEZOLID
     Indication: INFECTION PROPHYLAXIS
     Dosage: 600 MG, UNK
     Route: 048
     Dates: start: 20170614, end: 20170616
  3. BISOPROLOL [Concomitant]
     Active Substance: BISOPROLOL
     Indication: ARRHYTHMIA
     Dosage: UNK
     Route: 065
     Dates: start: 20170615, end: 20170617
  4. DICLOFENAC SODIUM. [Concomitant]
     Active Substance: DICLOFENAC SODIUM
     Indication: PAIN PROPHYLAXIS
     Dosage: UNK
     Route: 065
     Dates: start: 20170603, end: 20170616
  5. ZOPICLONE [Concomitant]
     Active Substance: ZOPICLONE
     Indication: INSOMNIA
     Dosage: UNK
     Route: 048
     Dates: start: 20170608
  6. CUBICIN [Suspect]
     Active Substance: DAPTOMYCIN
     Indication: INFECTION PROPHYLAXIS
     Dosage: 350 MG, UNK
     Route: 042
     Dates: start: 20170331, end: 20170601
  7. URSODEOXYCHOLIC ACID [Concomitant]
     Active Substance: URSODIOL
     Indication: HEPATIC FUNCTION ABNORMAL
     Dosage: UNK
     Route: 065
     Dates: start: 20170605, end: 20170624
  8. METOCLOPRAMIDE. [Concomitant]
     Active Substance: METOCLOPRAMIDE
     Indication: NAUSEA
     Dosage: UNK
     Route: 065
     Dates: start: 20170616, end: 20170624
  9. LYRICA [Concomitant]
     Active Substance: PREGABALIN
     Indication: PAIN PROPHYLAXIS
     Dosage: UNK
     Route: 048
     Dates: start: 20170531, end: 20170726
  10. BAKTAR [Concomitant]
     Active Substance: SULFAMETHOXAZOLE\TRIMETHOPRIM
     Indication: INFECTION PROPHYLAXIS
     Dosage: 4 DF, UNK
     Route: 048
     Dates: start: 20170603, end: 20170622
  11. MAGNESIUM OXIDE. [Concomitant]
     Active Substance: MAGNESIUM OXIDE
     Indication: CONSTIPATION
     Dosage: UNK
     Route: 065
     Dates: start: 20170614, end: 20170616
  12. LOXONIN [Concomitant]
     Active Substance: LOXOPROFEN SODIUM
     Indication: PAIN PROPHYLAXIS
     Dosage: UNK
     Route: 065
     Dates: start: 20170615, end: 20170624
  13. CUBICIN [Suspect]
     Active Substance: DAPTOMYCIN
     Dosage: 500 MG, UNK
     Route: 042
     Dates: start: 20170602, end: 20170612
  14. RIFADIN [Concomitant]
     Active Substance: RIFAMPIN
     Indication: INFECTION PROPHYLAXIS
     Dosage: 450 MG, UNK
     Route: 048
     Dates: start: 20170614, end: 20170621
  15. LANSOPRAZOLE. [Concomitant]
     Active Substance: LANSOPRAZOLE
     Indication: NAUSEA
     Dosage: UNK
     Route: 065
     Dates: start: 20170616, end: 20170624

REACTIONS (1)
  - Eosinophilic pneumonia [Recovered/Resolved]

NARRATIVE: CASE EVENT DATE: 20170623
